FAERS Safety Report 18428046 (Version 1)
Quarter: 2020Q4

REPORT INFORMATION
  Report Type: Spontaneous
  Country: RS (occurrence: RS)
  Receive Date: 20201026
  Receipt Date: 20201026
  Transmission Date: 20210114
  Serious: Yes (Hospitalization)
  Sender: FDA-Public Use
  Company Number: RS-JNJFOC-20201029463

PATIENT
  Age: 3 Decade
  Sex: Male

DRUGS (4)
  1. RISPOLEPT CONSTA [Suspect]
     Active Substance: RISPERIDONE
     Indication: SCHIZOPHRENIA
     Route: 030
     Dates: start: 2017
  2. RISPOLEPT CONSTA [Suspect]
     Active Substance: RISPERIDONE
  3. RISPOLEPT CONSTA [Suspect]
     Active Substance: RISPERIDONE
  4. RISPOLEPT CONSTA [Suspect]
     Active Substance: RISPERIDONE

REACTIONS (4)
  - Insomnia [Recovered/Resolved]
  - Obsessive thoughts [Recovered/Resolved]
  - Fear [Recovered/Resolved]
  - Eating disorder [Recovered/Resolved]

NARRATIVE: CASE EVENT DATE: 20190210
